FAERS Safety Report 5822737-X (Version None)
Quarter: 2008Q3

REPORT INFORMATION
  Report Type: 
  Country: None (occurrence: None)
  Receive Date: 20080725
  Receipt Date: 20070926
  Transmission Date: 20090109
  Serious: No
  Sender: FDA-Public Use
  Company Number: US-AMGEN-KDL245324

PATIENT
  Sex: Female
  Weight: 104.4 kg

DRUGS (9)
  1. PROCRIT [Suspect]
     Indication: RENAL FAILURE CHRONIC
     Dates: start: 20060301
  2. VITAMIN E [Concomitant]
  3. NEXIUM [Concomitant]
  4. IRON [Concomitant]
  5. VITAMIN D [Concomitant]
  6. AMARYL [Concomitant]
  7. PLAVIX [Concomitant]
  8. UNSPECIFIED ANTIHYPERTENSIVE AGENT [Concomitant]
  9. ASPIRIN [Concomitant]

REACTIONS (4)
  - EPISTAXIS [None]
  - FAECES DISCOLOURED [None]
  - GASTROINTESTINAL HAEMORRHAGE [None]
  - HAEMOGLOBIN DECREASED [None]
